FAERS Safety Report 20478285 (Version 2)
Quarter: 2022Q1

REPORT INFORMATION
  Report Type: Spontaneous
  Country: TR (occurrence: TR)
  Receive Date: 20220216
  Receipt Date: 20220223
  Transmission Date: 20220424
  Serious: Yes (Life-Threatening, Hospitalization)
  Sender: FDA-Public Use
  Company Number: TR-002147023-NVSC2022TR032768

PATIENT
  Age: 33 Year
  Sex: Male

DRUGS (1)
  1. XOLAIR [Suspect]
     Active Substance: OMALIZUMAB
     Indication: Hypersensitivity
     Route: 065

REACTIONS (9)
  - Mouth swelling [Unknown]
  - Eye swelling [Unknown]
  - Lip swelling [Unknown]
  - Exophthalmos [Unknown]
  - Nausea [Recovered/Resolved]
  - Lip injury [Unknown]
  - Hypersensitivity [Unknown]
  - Product supply issue [Unknown]
  - Off label use [Unknown]
